FAERS Safety Report 19402747 (Version 2)
Quarter: 2022Q1

REPORT INFORMATION
  Report Type: Report from Study
  Country: US (occurrence: US)
  Receive Date: 20210610
  Receipt Date: 20220214
  Transmission Date: 20220424
  Serious: Yes (Other)
  Sender: FDA-Public Use
  Company Number: US-PFIZER INC-2017324732

PATIENT
  Age: 54 Year
  Sex: Female

DRUGS (7)
  1. IBRANCE [Suspect]
     Active Substance: PALBOCICLIB
     Indication: Breast cancer female
     Dosage: 100 MG, DAILY
     Route: 048
     Dates: start: 20161201
  2. IBRANCE [Suspect]
     Active Substance: PALBOCICLIB
     Dosage: 100 MG, CYCLIC(100MG DAILY FOR 21 DAYS OF 28-DAY CYCLE) (1 WEEK ON, 1 WEEK OFF)
     Route: 048
     Dates: start: 20190822, end: 20191229
  3. IBRANCE [Suspect]
     Active Substance: PALBOCICLIB
     Dosage: 100 MG, CYCLIC(100MG DAILY FOR 21 DAYS OF 28-DAY CYCLE) (1 WEEK ON, 1 WEEK OFF)
     Route: 048
     Dates: start: 20200226
  4. IBRANCE [Suspect]
     Active Substance: PALBOCICLIB
     Dosage: 100 MG, CYCLIC(100MG TABLET DAILY BY MOUTH FOR ONE WEEK ON FOLLOWED BY ONE WEEK OFF)
     Route: 048
     Dates: start: 2020
  5. LETROZOLE [Concomitant]
     Active Substance: LETROZOLE
     Dosage: UNK, DAILY
  6. CLONAZEPAM [Concomitant]
     Active Substance: CLONAZEPAM
     Dosage: UNK
  7. ZYRTEC [Concomitant]
     Active Substance: CETIRIZINE HYDROCHLORIDE
     Dosage: UNK

REACTIONS (13)
  - Neuropathy peripheral [Recovered/Resolved]
  - Neutropenia [Unknown]
  - Influenza [Unknown]
  - Fatigue [Unknown]
  - Peripheral swelling [Unknown]
  - White blood cell count decreased [Recovered/Resolved]
  - Oedema [Unknown]
  - Amnesia [Unknown]
  - Pain [Recovered/Resolved]
  - Tumour marker abnormal [Unknown]
  - COVID-19 [Recovered/Resolved]
  - Rhinorrhoea [Recovered/Resolved]
  - Oropharyngeal pain [Recovered/Resolved]

NARRATIVE: CASE EVENT DATE: 20190101
